FAERS Safety Report 25030328 (Version 1)
Quarter: 2025Q1

REPORT INFORMATION
  Report Type: Spontaneous
  Country: US (occurrence: US)
  Receive Date: 20250303
  Receipt Date: 20250303
  Transmission Date: 20250408
  Serious: Yes (Hospitalization)
  Sender: AMGEN
  Company Number: US-AMGEN-USASP2025041145

PATIENT
  Age: 13 Year
  Sex: Male

DRUGS (1)
  1. PROCYSBI [Suspect]
     Active Substance: CYSTEAMINE BITARTRATE
     Indication: Cystinosis
     Dosage: 1875 MILLIGRAM, Q12H
     Route: 048
     Dates: start: 201606

REACTIONS (2)
  - Bulimia nervosa [Recovered/Resolved]
  - Hypervolaemia [Recovered/Resolved]
